FAERS Safety Report 24241533 (Version 2)
Quarter: 2024Q3

REPORT INFORMATION
  Report Type: Report from Study
  Country: AU (occurrence: AU)
  Receive Date: 20240823
  Receipt Date: 20240828
  Transmission Date: 20241016
  Serious: Yes (Hospitalization)
  Sender: ABBVIE
  Company Number: AU-ABBVIE-5889858

PATIENT
  Age: 68 Year
  Sex: Male
  Weight: 97 kg

DRUGS (1)
  1. LEUPROLIDE ACETATE [Suspect]
     Active Substance: ISOPROPYL ALCOHOL\LEUPROLIDE ACETATE
     Indication: Prostate cancer
     Route: 030
     Dates: start: 20240305

REACTIONS (1)
  - Surgery [Recovering/Resolving]

NARRATIVE: CASE EVENT DATE: 20240711
